FAERS Safety Report 5272754-6 (Version None)
Quarter: 2007Q1

REPORT INFORMATION
  Report Type: 
  Country: None (occurrence: None)
  Receive Date: 20070322
  Receipt Date: 20070320
  Transmission Date: 20070707
  Serious: Yes (Other)
  Sender: FDA-Public Use
  Company Number: US-GLAXOSMITHKLINE-A0643936A

PATIENT
  Age: 50 Year
  Sex: Male

DRUGS (14)
  1. ADVAIR DISKUS 100/50 [Suspect]
     Indication: ASTHMA
     Dosage: 2PUFF TWICE PER DAY
     Route: 055
  2. PREDNISOLONE ACETATE [Suspect]
     Indication: EYE DISORDER
     Dosage: 1DROP FOUR TIMES PER DAY
     Dates: start: 20070101
  3. LOPID [Concomitant]
  4. NAPROSYN [Concomitant]
  5. CLARINEX [Concomitant]
  6. CARDURA [Concomitant]
  7. SINGULAIR [Concomitant]
  8. ATACAND [Concomitant]
  9. LIPITOR [Concomitant]
  10. AGGRENOX [Concomitant]
  11. PROTONIX [Concomitant]
  12. BETA CAROTENE + VITAMIN A [Concomitant]
  13. XOPENEX [Concomitant]
  14. ALBUTEROL [Concomitant]

REACTIONS (5)
  - EYE DISORDER [None]
  - EYE HAEMORRHAGE [None]
  - EYE IRRITATION [None]
  - VISUAL ACUITY REDUCED [None]
  - VISUAL FIELD DEFECT [None]
